FAERS Safety Report 5130721-7 (Version None)
Quarter: 2006Q4

REPORT INFORMATION
  Report Type: 
  Country: None (occurrence: None)
  Receive Date: 20061018
  Receipt Date: 20061018
  Transmission Date: 20070319
  Serious: Yes (Death)
  Sender: FDA-Public Use
  Company Number: None

PATIENT
  Age: 86 Year
  Sex: Female

DRUGS (12)
  1. DIGOXIN [Suspect]
     Indication: ATRIAL FIBRILLATION
     Dosage: 250 MCG PO DAILY  CHRONIC
     Route: 048
  2. ACIPHEX [Concomitant]
  3. BENICAR HCT [Concomitant]
  4. DILTIAZEM SR [Concomitant]
  5. LASIX [Concomitant]
  6. POTASSIUM [Concomitant]
  7. LORATADINE [Concomitant]
  8. METOPROLOL [Concomitant]
  9. ALLOPURINOL [Concomitant]
  10. WARFARIN SODIUM [Concomitant]
  11. MULTI-VITAMIN [Concomitant]
  12. TYLENOL [Concomitant]

REACTIONS (8)
  - ASTHENIA [None]
  - CONFUSIONAL STATE [None]
  - DIARRHOEA [None]
  - FALL [None]
  - HYPOTENSION [None]
  - LABORATORY TEST ABNORMAL [None]
  - LETHARGY [None]
  - NODAL ARRHYTHMIA [None]
